FAERS Safety Report 16913304 (Version 1)
Quarter: 2019Q4

REPORT INFORMATION
  Report Type: Spontaneous
  Country: US (occurrence: US)
  Receive Date: 20191011
  Receipt Date: 20191011
  Transmission Date: 20200122
  Serious: No
  Sender: FDA-Public Use
  Company Number: None

PATIENT
  Age: 20 Year
  Sex: Male
  Weight: 123.75 kg

DRUGS (1)
  1. CAPZASIN HP ARTHRITIS PAIN RELIEF [Suspect]
     Active Substance: CAPSAICIN
     Indication: LIGAMENT SPRAIN
     Route: 061
     Dates: start: 20191011, end: 20191011

REACTIONS (1)
  - Application site pain [None]

NARRATIVE: CASE EVENT DATE: 20191011
